FAERS Safety Report 16484918 (Version 1)
Quarter: 2019Q2

REPORT INFORMATION
  Report Type: Spontaneous
  Country: US (occurrence: US)
  Receive Date: 20190516
  Receipt Date: 20190516
  Transmission Date: 20190711
  Serious: No
  Sender: FDA-Public Use
  Company Number: None

PATIENT
  Age: 52 Year
  Sex: Female

DRUGS (4)
  1. TRACLEER [Concomitant]
     Active Substance: BOSENTAN
  2. SILDENAFIL. [Concomitant]
     Active Substance: SILDENAFIL
  3. COUMADIN [Concomitant]
     Active Substance: WARFARIN SODIUM
  4. MYCOPHENOLATE MOFETIL 500 MG TABLET [Suspect]
     Active Substance: MYCOPHENOLATE MOFETIL
     Route: 048
     Dates: start: 201902

REACTIONS (1)
  - Pulmonary congestion [None]

NARRATIVE: CASE EVENT DATE: 20190516
